FAERS Safety Report 8913064 (Version 1)
Quarter: 2012Q4

REPORT INFORMATION
  Report Type: Spontaneous
  Country: GB (occurrence: None)
  Receive Date: 20121113
  Receipt Date: 20121113
  Transmission Date: 20130627
  Serious: Yes (Other)
  Sender: FDA-Public Use
  Company Number: AUR-APL-2012-04824

PATIENT
  Age: 76 Year
  Sex: Female

DRUGS (6)
  1. METFORMIN [Suspect]
     Indication: DRUG USE FOR UNKNOWN INDICATION
  2. SODIUM LACTATE [Suspect]
  3. METHOTREXATE (METHOTREXATE) [Concomitant]
  4. SULPHASALAZINE (SULFASALAZINE) [Concomitant]
  5. SITAGLIPTIN (SITAGLIPTIN) [Concomitant]
  6. GLICLAZIDE (GLICLAZIDE) [Concomitant]

REACTIONS (3)
  - Hyperlactacidaemia [None]
  - Haemodynamic instability [None]
  - Procedural haemorrhage [None]
